FAERS Safety Report 14083381 (Version 3)
Quarter: 2017Q4

REPORT INFORMATION
  Report Type: Spontaneous
  Country: CA (occurrence: CA)
  Receive Date: 20171012
  Receipt Date: 20171111
  Transmission Date: 20180321
  Serious: No
  Sender: FDA-Public Use
  Company Number: CA-ROCHE-2005600

PATIENT
  Sex: Female

DRUGS (2)
  1. ACTEMRA [Suspect]
     Active Substance: TOCILIZUMAB
     Dosage: INFUSION NUMBER: 2
     Route: 042
     Dates: start: 20170928
  2. ACTEMRA [Suspect]
     Active Substance: TOCILIZUMAB
     Indication: PRODUCT USED FOR UNKNOWN INDICATION
     Dosage: INITIAL DOSING DETAILS NOT PROVIDED
     Route: 042

REACTIONS (2)
  - Weight decreased [Unknown]
  - Abdominal discomfort [Unknown]
